FAERS Safety Report 4832495-3 (Version None)
Quarter: 2005Q4

REPORT INFORMATION
  Report Type: 
  Country: None (occurrence: None)
  Receive Date: 20051117
  Receipt Date: 20051027
  Transmission Date: 20060501
  Serious: Yes (Other)
  Sender: FDA-Public Use
  Company Number: ENTC2005-0322

PATIENT
  Sex: Male

DRUGS (2)
  1. STALEVO 100 [Suspect]
     Indication: PARKINSON'S DISEASE
  2. KEPPRA [Suspect]
     Indication: PARKINSON'S DISEASE

REACTIONS (6)
  - ANOREXIA [None]
  - ASTHENIA [None]
  - BLOOD DISORDER [None]
  - HALLUCINATION [None]
  - INFECTION [None]
  - SOMNOLENCE [None]
